FAERS Safety Report 19806641 (Version 1)
Quarter: 2021Q3

REPORT INFORMATION
  Report Type: Spontaneous
  Country: US (occurrence: US)
  Receive Date: 20210908
  Receipt Date: 20210908
  Transmission Date: 20211014
  Serious: Yes (Other)
  Sender: FDA-Public Use
  Company Number: US-AMGEN-USASP2021136505

PATIENT
  Age: 91 Year
  Sex: Female

DRUGS (3)
  1. BEVACIZUMAB. [Suspect]
     Active Substance: BEVACIZUMAB
     Indication: OFF LABEL USE
  2. AFLIBERCEPT [Concomitant]
     Active Substance: AFLIBERCEPT
     Dosage: EVERY 6 TO 8 WEEKS
  3. BEVACIZUMAB. [Suspect]
     Active Substance: BEVACIZUMAB
     Indication: NEOVASCULAR AGE-RELATED MACULAR DEGENERATION
     Dosage: UNK, EVERY 6 TO 8 WEEKS

REACTIONS (2)
  - Endophthalmitis [Unknown]
  - Off label use [Unknown]
